FAERS Safety Report 20012298 (Version 4)
Quarter: 2022Q1

REPORT INFORMATION
  Report Type: Report from Study
  Country: AR (occurrence: None)
  Receive Date: 20211029
  Receipt Date: 20220201
  Transmission Date: 20220423
  Serious: Yes (Life-Threatening, Hospitalization)
  Sender: FDA-Public Use
  Company Number: AR-ROCHE-2910567

PATIENT
  Age: 42 Year
  Sex: Female
  Weight: 54 kg

DRUGS (27)
  1. OBINUTUZUMAB [Suspect]
     Active Substance: OBINUTUZUMAB
     Indication: Lupus nephritis
     Dosage: ON 21/APR/2021 AT 8:30 AM, SHE RECEIVED MOST RECENT DOSE OF OBINUTUZUMAB PRIOR TO ONSET OF AE/SAE.
     Route: 042
     Dates: start: 20210331
  2. MYCOPHENOLATE MOFETIL [Suspect]
     Active Substance: MYCOPHENOLATE MOFETIL
     Indication: Lupus nephritis
     Dosage: ON 24/JUN/2021 AT 8:00 PM, SHE RECEIVED MOST RECENT DOSE OF MYCOPHENOLATE MOFETIL AT 1000 MG PRIOR T
     Route: 048
     Dates: start: 20210331
  3. OMEPRAZOLE [Concomitant]
     Active Substance: OMEPRAZOLE
     Route: 048
     Dates: start: 2009
  4. ENALAPRIL [Concomitant]
     Active Substance: ENALAPRIL
     Indication: Hypertension
     Route: 048
     Dates: start: 202102, end: 20210714
  5. ENALAPRIL [Concomitant]
     Active Substance: ENALAPRIL
     Route: 048
     Dates: start: 20210715
  6. METOCLOPRAMIDE [Concomitant]
     Active Substance: METOCLOPRAMIDE
     Indication: Cholelithiasis
     Route: 060
     Dates: start: 20210414, end: 20210721
  7. HYOSCINE BROMIDE [Concomitant]
     Indication: Cholelithiasis
     Route: 048
     Dates: start: 20210414, end: 20210714
  8. ACETAMINOPHEN [Concomitant]
     Active Substance: ACETAMINOPHEN
     Indication: Migraine
     Route: 048
     Dates: start: 202012
  9. PROGESTERONE [Concomitant]
     Active Substance: PROGESTERONE
     Indication: Contraception
     Route: 048
     Dates: start: 20210420, end: 20210826
  10. HYDROCHLOROTHIAZIDE [Concomitant]
     Active Substance: HYDROCHLOROTHIAZIDE
     Indication: Hypertension
     Route: 048
     Dates: start: 20210614, end: 20210714
  11. CINNARIZINE [Concomitant]
     Active Substance: CINNARIZINE
     Indication: Gastritis erosive
     Route: 048
     Dates: start: 20210614, end: 20210714
  12. CLOBAZAM [Concomitant]
     Active Substance: CLOBAZAM
     Indication: Migraine
     Route: 048
     Dates: start: 20210615, end: 20210721
  13. TOPIRAMATE [Concomitant]
     Active Substance: TOPIRAMATE
     Indication: Migraine
     Route: 048
     Dates: start: 20210615, end: 20210721
  14. MEPREDNISONE [Concomitant]
     Active Substance: MEPREDNISONE
     Indication: Lupus nephritis
     Route: 048
     Dates: start: 20210715, end: 20210920
  15. CALCIUM CARBONATE [Concomitant]
     Active Substance: CALCIUM CARBONATE
     Indication: Osteoporosis
     Route: 048
     Dates: start: 20210715
  16. FOLIC ACID [Concomitant]
     Active Substance: FOLIC ACID
     Indication: Anaemia
     Route: 048
     Dates: start: 20210715
  17. PREDNISONE [Concomitant]
     Active Substance: PREDNISONE
     Indication: Lupus nephritis
     Route: 048
     Dates: start: 20210624, end: 20210714
  18. PNEUMOCOCCAL VACCINE POLYVALENT NOS [Concomitant]
     Active Substance: PNEUMOCOCCAL VACCINE POLYVALENT
     Dates: start: 20210131
  19. INFLUENZA VIRUS VACCINE [Concomitant]
     Active Substance: INFLUENZA VIRUS VACCINE
     Dates: start: 20210131
  20. HEPATITIS B VIRUS VACCINE [Concomitant]
     Active Substance: HEPATITIS B VIRUS VACCINE
     Dates: start: 20210131
  21. METHYLDOPA [Concomitant]
     Active Substance: METHYLDOPA
     Indication: Hypertension
     Route: 048
     Dates: start: 20210827
  22. AMLODIPINE [Concomitant]
     Active Substance: AMLODIPINE BESYLATE
     Indication: Hypertension
     Route: 048
     Dates: start: 20210827
  23. HYDROXYCHLOROQUINE [Concomitant]
     Active Substance: HYDROXYCHLOROQUINE
     Indication: Lupus nephritis
     Route: 048
     Dates: start: 20210830
  24. ERGOCALCIFEROL [Concomitant]
     Active Substance: ERGOCALCIFEROL
     Indication: Osteoporosis
     Route: 048
     Dates: start: 20210615, end: 20211015
  25. URSODIOL [Concomitant]
     Active Substance: URSODIOL
     Indication: Cholestasis
     Route: 048
     Dates: start: 20210727, end: 20210826
  26. GANCICLOVIR [Concomitant]
     Active Substance: GANCICLOVIR
     Indication: Cytomegalovirus test positive
     Dates: start: 202108, end: 202108
  27. CYCLOPHOSPHAMIDE [Concomitant]
     Active Substance: CYCLOPHOSPHAMIDE
     Indication: Lupus nephritis
     Route: 042
     Dates: start: 20210721

REACTIONS (1)
  - Cardiac failure [Recovered/Resolved]

NARRATIVE: CASE EVENT DATE: 20210805
